FAERS Safety Report 8916468 (Version 1)
Quarter: 2012Q4

REPORT INFORMATION
  Report Type: 
  Country: US (occurrence: US)
  Receive Date: 20121120
  Receipt Date: 20121120
  Transmission Date: 20130627
  Serious: No
  Sender: FDA-Public Use
  Company Number: US-PFIZER INC-2012290547

PATIENT
  Age: 55 Year
  Sex: Female
  Weight: 52.15 kg

DRUGS (1)
  1. LYRICA [Suspect]
     Indication: NEUROPATHY
     Dosage: 100 mg, 1x/day
     Route: 048
     Dates: end: 201211

REACTIONS (1)
  - Hypersensitivity [Unknown]
